FAERS Safety Report 25581138 (Version 2)
Quarter: 2025Q3

REPORT INFORMATION
  Report Type: Spontaneous
  Country: US (occurrence: US)
  Receive Date: 20250718
  Receipt Date: 20250718
  Transmission Date: 20251020
  Serious: No
  Sender: NOVO NORDISK
  Company Number: US-NOVOPROD-1358940

PATIENT
  Age: 39 Year
  Sex: Female

DRUGS (2)
  1. WEGOVY [Suspect]
     Active Substance: SEMAGLUTIDE
     Indication: Weight control
     Dosage: 2.4 MG, QW
     Route: 058
     Dates: start: 2024
  2. WEGOVY [Suspect]
     Active Substance: SEMAGLUTIDE
     Indication: Weight control
     Route: 058

REACTIONS (7)
  - Pain [Recovering/Resolving]
  - Insomnia [Recovering/Resolving]
  - Headache [Recovering/Resolving]
  - Vomiting [Recovering/Resolving]
  - Abdominal pain upper [Recovering/Resolving]
  - Off label use [Unknown]
  - Product dispensing error [Unknown]

NARRATIVE: CASE EVENT DATE: 20241005
